FAERS Safety Report 20843779 (Version 1)
Quarter: 2022Q2

REPORT INFORMATION
  Report Type: Spontaneous
  Country: US (occurrence: US)
  Receive Date: 20220518
  Receipt Date: 20220518
  Transmission Date: 20220721
  Serious: Yes (Other)
  Sender: FDA-Public Use
  Company Number: US-PFIZER INC-202200657964

PATIENT
  Age: 75 Year
  Sex: Female
  Weight: 71.67 kg

DRUGS (4)
  1. ACCUPRIL [Suspect]
     Active Substance: QUINAPRIL HYDROCHLORIDE
     Indication: Hypertension
     Dosage: 40 MG, 2X/DAY (40 MG IN THE MORNING AND 40 MG AT NIGHT)
     Route: 048
     Dates: start: 2008
  2. NORVASC [Suspect]
     Active Substance: AMLODIPINE BESYLATE
     Indication: Hypertension
     Dosage: 10 MG, 1X/DAY (10 MG AT NIGHT, ONCE A DAY)
  3. METFORMIN [Concomitant]
     Active Substance: METFORMIN HYDROCHLORIDE
     Indication: Type 2 diabetes mellitus
     Dosage: 500 MG, 2X/DAY
     Dates: start: 2001
  4. PREMARIN [Concomitant]
     Active Substance: ESTROGENS, CONJUGATED
     Indication: Hormone therapy
     Dosage: UNK

REACTIONS (3)
  - Rotator cuff syndrome [Unknown]
  - Accident [Unknown]
  - Weight increased [Unknown]

NARRATIVE: CASE EVENT DATE: 20210801
